FAERS Safety Report 15689852 (Version 6)
Quarter: 2023Q4

REPORT INFORMATION
  Report Type: Spontaneous
  Country: US (occurrence: US)
  Receive Date: 20181205
  Receipt Date: 20231228
  Transmission Date: 20240110
  Serious: No
  Sender: FDA-Public Use
  Company Number: US-PFIZER INC-2017398804

PATIENT
  Age: 74 Year
  Sex: Male
  Weight: 82 kg

DRUGS (12)
  1. SOMAVERT [Suspect]
     Active Substance: PEGVISOMANT
     Indication: Acromegaly
     Dosage: 20 MG, DAILY
     Route: 058
     Dates: start: 2016
  2. SOMAVERT [Suspect]
     Active Substance: PEGVISOMANT
     Indication: Gigantism
     Dosage: 20 MG, 5 DAYS A WEEK
     Route: 058
     Dates: start: 2016
  3. SOMAVERT [Suspect]
     Active Substance: PEGVISOMANT
     Dosage: 20 MG, 6 DAYS A WEEK
  4. SOMAVERT [Suspect]
     Active Substance: PEGVISOMANT
     Dosage: 20 MG [FIVE DAYS PER WEEK]
     Dates: start: 20161213
  5. SOMAVERT [Suspect]
     Active Substance: PEGVISOMANT
     Dosage: 20 MG [FIVE DAYS PER WEEK]
     Route: 058
     Dates: start: 20150813
  6. SOMAVERT [Suspect]
     Active Substance: PEGVISOMANT
     Dosage: 20 MG [FIVE DAYS PER WEEK]
     Route: 058
     Dates: start: 20161213
  7. FORTEO [Concomitant]
     Active Substance: TERIPARATIDE
     Indication: Mineral supplementation
     Dosage: 20 UG, DAILY
     Route: 058
     Dates: start: 2016
  8. CALCIUM\VITAMIN D [Concomitant]
     Active Substance: CALCIUM\VITAMIN D
     Dosage: UNK
  9. LATANOPROST [Concomitant]
     Active Substance: LATANOPROST
     Dosage: UNK
  10. PEPCID [Concomitant]
     Active Substance: FAMOTIDINE
     Dosage: 20 MG
  11. PROLIA [Concomitant]
     Active Substance: DENOSUMAB
     Dosage: 60 MG/ML
  12. VITAMIN D NOS [Concomitant]
     Active Substance: VITAMIN D NOS
     Dosage: 2000 IU

REACTIONS (3)
  - Off label use [Unknown]
  - Product dose omission issue [Unknown]
  - Insulin-like growth factor increased [Unknown]

NARRATIVE: CASE EVENT DATE: 20170120
